FAERS Safety Report 5430972-8 (Version None)
Quarter: 2007Q3

REPORT INFORMATION
  Report Type: 
  Country: None (occurrence: None)
  Receive Date: 20070830
  Receipt Date: 20070824
  Transmission Date: 20080115
  Serious: Yes (Death)
  Sender: FDA-Public Use
  Company Number: A0676150A

PATIENT
  Age: 73 Year
  Sex: Female

DRUGS (2)
  1. FLONASE [Suspect]
     Indication: DRUG USE FOR UNKNOWN INDICATION
     Route: 045
  2. MULTIPLE MEDICATIONS [Concomitant]

REACTIONS (1)
  - POST PROCEDURAL INFECTION [None]
